FAERS Safety Report 8949061 (Version 1)
Quarter: 2012Q4

REPORT INFORMATION
  Report Type: 
  Country: FR (occurrence: FR)
  Receive Date: 20121206
  Receipt Date: 20121206
  Transmission Date: 20130627
  Serious: Yes (Hospitalization, Other)
  Sender: FDA-Public Use
  Company Number: FR-ROCHE-1164739

PATIENT
  Age: 49 Year
  Sex: Female

DRUGS (3)
  1. MABTHERA [Suspect]
     Indication: EYE DISORDER
     Route: 042
     Dates: start: 20120717, end: 20120731
  2. SOLU-MEDROL [Suspect]
     Indication: EYE DISORDER
     Dosage: from November 2011 to April 2012
     Route: 042
  3. SOLU-MEDROL [Suspect]
     Route: 050

REACTIONS (2)
  - Periodontitis [Recovered/Resolved]
  - Tooth fracture [Recovered/Resolved with Sequelae]
